FAERS Safety Report 7708101-7 (Version None)
Quarter: 2011Q3

REPORT INFORMATION
  Report Type: 
  Country: None (occurrence: None)
  Receive Date: 20110825
  Receipt Date: 20110816
  Transmission Date: 20111222
  Serious: Yes (Other)
  Sender: FDA-Public Use
  Company Number: 2007BI008719

PATIENT
  Age: 31 Year
  Sex: Female

DRUGS (4)
  1. AVONEX [Suspect]
     Route: 030
     Dates: start: 20110101
  2. AVONEX [Suspect]
     Route: 030
     Dates: start: 20091016, end: 20110320
  3. AVONEX [Suspect]
     Indication: MULTIPLE SCLEROSIS
     Route: 030
     Dates: start: 19981015, end: 20030101
  4. AVONEX [Suspect]
     Route: 030
     Dates: start: 20040101, end: 20050114

REACTIONS (2)
  - ABNORMAL LABOUR [None]
  - UMBILICAL CORD VASCULAR DISORDER [None]
